FAERS Safety Report 12452142 (Version 9)
Quarter: 2017Q1

REPORT INFORMATION
  Report Type: Report from Study
  Country: US (occurrence: US)
  Receive Date: 20160609
  Receipt Date: 20170209
  Transmission Date: 20170428
  Serious: Yes (Hospitalization, Other)
  Sender: FDA-Public Use
  Company Number: US-BAYER-2016-004986

PATIENT
  Age: 69 Year
  Sex: Female
  Weight: 93.88 kg

DRUGS (28)
  1. ADEMPAS [Suspect]
     Active Substance: RIOCIGUAT
     Indication: PULMONARY ARTERIAL HYPERTENSION
     Dosage: 1 MG, TID
     Route: 048
  2. ADEMPAS [Suspect]
     Active Substance: RIOCIGUAT
     Indication: PULMONARY ARTERIAL HYPERTENSION
     Dosage: 1.5 MG, TID
     Route: 048
  3. OPSUMIT [Concomitant]
     Active Substance: MACITENTAN
     Dosage: UNK
  4. ADEMPAS [Suspect]
     Active Substance: RIOCIGUAT
     Indication: PULMONARY ARTERIAL HYPERTENSION
     Dosage: 2.5 MG, TID
     Route: 048
  5. OXYGEN. [Concomitant]
     Active Substance: OXYGEN
  6. ADEMPAS [Suspect]
     Active Substance: RIOCIGUAT
     Indication: PULMONARY ARTERIAL HYPERTENSION
     Dosage: UNK
     Route: 048
     Dates: start: 20151228
  7. ADEMPAS [Suspect]
     Active Substance: RIOCIGUAT
     Indication: PULMONARY ARTERIAL HYPERTENSION
     Dosage: 1.5 MG, TID
     Route: 048
  8. ADEMPAS [Suspect]
     Active Substance: RIOCIGUAT
     Indication: PULMONARY ARTERIAL HYPERTENSION
     Dosage: 2.5 MG, TID
     Route: 048
  9. DILAUDID [Concomitant]
     Active Substance: HYDROMORPHONE HYDROCHLORIDE
     Dosage: 1 MG, PRN
     Route: 048
  10. LOSARTAN POTASSIUM. [Concomitant]
     Active Substance: LOSARTAN POTASSIUM
     Dosage: 25 MG, QD
     Route: 048
  11. SPIRONOLACTONE. [Concomitant]
     Active Substance: SPIRONOLACTONE
     Dosage: 25 MG, BID
     Route: 048
  12. AMLODIPINE [Concomitant]
     Active Substance: AMLODIPINE BESYLATE
     Dosage: 2.5 MG, QD
  13. BUDESONIDE. [Concomitant]
     Active Substance: BUDESONIDE
     Dosage: UNK
  14. BROVANA [Concomitant]
     Active Substance: ARFORMOTEROL TARTRATE
  15. ADEMPAS [Suspect]
     Active Substance: RIOCIGUAT
     Indication: PULMONARY ARTERIAL HYPERTENSION
     Dosage: 2.5 MG, TID
     Route: 048
  16. ADEMPAS [Suspect]
     Active Substance: RIOCIGUAT
     Indication: PULMONARY ARTERIAL HYPERTENSION
     Dosage: 1 MG, TID
     Route: 048
  17. VELETRI [Suspect]
     Active Substance: EPOPROSTENOL
  18. LASIX [Concomitant]
     Active Substance: FUROSEMIDE
     Indication: OEDEMA PERIPHERAL
     Dosage: 40 MG, PRN
     Route: 048
  19. ZANTAC [Concomitant]
     Active Substance: RANITIDINE HYDROCHLORIDE
     Dosage: 150 MG, QD
     Route: 048
  20. ADEMPAS [Suspect]
     Active Substance: RIOCIGUAT
     Indication: PULMONARY ARTERIAL HYPERTENSION
     Dosage: 1.5 MG, TID
     Route: 048
  21. ADEMPAS [Suspect]
     Active Substance: RIOCIGUAT
     Indication: PULMONARY ARTERIAL HYPERTENSION
     Dosage: 2.5 MG, TID
     Route: 048
  22. METOPROLOL TARTRATE. [Concomitant]
     Active Substance: METOPROLOL TARTRATE
     Dosage: 5MG/5ML SOLUTION
  23. OMEPRAZOLE. [Concomitant]
     Active Substance: OMEPRAZOLE
     Dosage: 20 MG, QD
  24. OFEV [Concomitant]
     Active Substance: NINTEDANIB
     Dosage: UNK
  25. ADEMPAS [Suspect]
     Active Substance: RIOCIGUAT
     Indication: PULMONARY ARTERIAL HYPERTENSION
     Dosage: 0.5 MG, TID
     Route: 048
     Dates: start: 20160106
  26. BENADRYL [ACRIVASTINE] [Suspect]
     Active Substance: ACRIVASTINE
     Dosage: UNK
  27. LOTRIMIN AF [CLOTRIMAZOLE] [Concomitant]
     Route: 062
  28. ALBUTEROL SULFATE. [Concomitant]
     Active Substance: ALBUTEROL SULFATE
     Dosage: 0.63MG/3ML AS NEEDED

REACTIONS (47)
  - Drug intolerance [Unknown]
  - Pulmonary arterial hypertension [None]
  - Diarrhoea [Unknown]
  - Diarrhoea [None]
  - Somnolence [Unknown]
  - Wheezing [None]
  - Dizziness [Unknown]
  - Accidental overdose [Unknown]
  - Drug intolerance [None]
  - Fatigue [None]
  - Oxygen saturation decreased [None]
  - Blood pressure diastolic decreased [Unknown]
  - Dyspnoea [Unknown]
  - Diarrhoea [Not Recovered/Not Resolved]
  - Dyspnoea [None]
  - Back pain [Unknown]
  - Dyspnoea exertional [None]
  - Application site rash [Unknown]
  - Epistaxis [Unknown]
  - Asthenia [None]
  - Dizziness [None]
  - Oedema [None]
  - Hypoxia [None]
  - Multiple allergies [None]
  - Sleep apnoea syndrome [None]
  - Rhinitis allergic [None]
  - Gastrooesophageal reflux disease [None]
  - Dry mouth [None]
  - Dyspnoea exertional [None]
  - Productive cough [Unknown]
  - Chronic obstructive pulmonary disease [None]
  - Rash generalised [Unknown]
  - Pain in jaw [Unknown]
  - Sinus congestion [None]
  - Rhinorrhoea [None]
  - Ear discomfort [Unknown]
  - Pneumonitis [None]
  - Pneumonitis [Unknown]
  - Pulmonary arterial hypertension [Unknown]
  - Dyspnoea [Not Recovered/Not Resolved]
  - Headache [Unknown]
  - Lymphadenopathy [None]
  - Dyspnoea [Unknown]
  - Interstitial lung disease [None]
  - Sinusitis [Unknown]
  - Constipation [Unknown]
  - Gait disturbance [Unknown]

NARRATIVE: CASE EVENT DATE: 20160601
